FAERS Safety Report 8890823 (Version 5)
Quarter: 2013Q1

REPORT INFORMATION
  Report Type: Spontaneous
  Country: US (occurrence: US)
  Receive Date: 20121107
  Receipt Date: 20130305
  Transmission Date: 20140127
  Serious: Yes (Hospitalization, Other)
  Sender: FDA-Public Use
  Company Number: US-009507513-1202USA00892

PATIENT
  Sex: Female
  Weight: 91.84 kg

DRUGS (8)
  1. FOSAMAX [Suspect]
     Indication: OSTEOPOROSIS
     Dosage: 10 MG, UNK
     Route: 048
     Dates: start: 19960110, end: 200901
  2. FOSAMAX [Suspect]
     Indication: OSTEOPENIA
     Dosage: 70 MG, UNK
     Route: 048
     Dates: start: 19960110, end: 200901
  3. FOSAMAX [Suspect]
     Indication: OSTEOPOROSIS
     Route: 048
     Dates: start: 1996, end: 2006
  4. FOSAMAX [Suspect]
     Indication: OSTEOPENIA
  5. CENTRUM (MINERALS (UNSPECIFIED) (+) VITAMINS (UNSPECIFIED)) [Concomitant]
     Dosage: UNK, QD
     Dates: start: 1996
  6. CALCIUM (UNSPECIFIED) [Concomitant]
     Indication: OSTEOPOROSIS
     Dosage: 1500 MG, QD
     Dates: start: 1996
  7. VITAMIN D (UNSPECIFIED) [Concomitant]
     Indication: OSTEOPOROSIS
     Dosage: 400 IU, QD
  8. CHONDROITIN SULFATE SODIUM (+) GLUCOSAMINE SULFATE [Concomitant]
     Indication: ARTHRITIS

REACTIONS (27)
  - Femur fracture [Recovered/Resolved]
  - Fall [Recovered/Resolved]
  - Closed fracture manipulation [Recovered/Resolved]
  - Knee arthroplasty [Unknown]
  - Knee arthroplasty [Unknown]
  - Breast cancer [Unknown]
  - Open reduction of fracture [Unknown]
  - Fractured sacrum [Unknown]
  - Cholelithiasis [Unknown]
  - Tooth extraction [Unknown]
  - Dental prosthesis placement [Unknown]
  - Hypertension [Unknown]
  - Atrial fibrillation [Not Recovered/Not Resolved]
  - Pollakiuria [Unknown]
  - Urinary incontinence [Unknown]
  - Hypokalaemia [Unknown]
  - Cardioactive drug level decreased [Unknown]
  - Diverticulum [Unknown]
  - Dyspnoea [Unknown]
  - Bursitis [Unknown]
  - Limb asymmetry [Unknown]
  - Cataract operation [Unknown]
  - Fall [Unknown]
  - Obesity [Unknown]
  - Haematoma [Unknown]
  - Spinal osteoarthritis [Unknown]
  - Arthralgia [Not Recovered/Not Resolved]
